FAERS Safety Report 9624374 (Version 3)
Quarter: 2014Q2

REPORT INFORMATION
  Report Type: Spontaneous
  Country: US (occurrence: US)
  Receive Date: 20131015
  Receipt Date: 20140605
  Transmission Date: 20141212
  Serious: Yes (Other)
  Sender: FDA-Public Use
  Company Number: US-PFIZER INC-2013293344

PATIENT
  Age: 52 Year
  Sex: Female
  Weight: 58 kg

DRUGS (9)
  1. LIPITOR [Suspect]
     Indication: LOW DENSITY LIPOPROTEIN INCREASED
     Dosage: UNK
     Route: 048
     Dates: start: 200707, end: 201105
  2. LIPITOR [Suspect]
     Indication: CARDIOVASCULAR EVENT PROPHYLAXIS
     Dosage: 10 MG, 1X/DAY
     Route: 048
     Dates: start: 199712, end: 2007
  3. LIPITOR [Suspect]
     Dosage: 20 MG, 1X/DAY
     Route: 048
     Dates: start: 20041014
  4. LIPITOR [Suspect]
     Dosage: 40 MG, 1X/DAY
     Route: 048
     Dates: start: 20080110
  5. LIPITOR [Suspect]
     Dosage: 80 MG, UNK
     Route: 048
     Dates: start: 200702, end: 2009
  6. LEVOTHYROXINE [Concomitant]
     Dosage: 75 MG, UNK
     Dates: start: 20090224
  7. ATACAND [Concomitant]
     Dosage: 8 MG, UNK
     Dates: start: 20090224
  8. ATENOLOL [Concomitant]
     Dosage: 50 MG, UNK
     Dates: start: 20090224
  9. PLAVIX [Concomitant]
     Dosage: 75 MG, UNK
     Dates: start: 20090225

REACTIONS (3)
  - Type 2 diabetes mellitus [Not Recovered/Not Resolved]
  - Neuropathy peripheral [Not Recovered/Not Resolved]
  - Pain [Not Recovered/Not Resolved]
